FAERS Safety Report 6832850-6 (Version None)
Quarter: 2010Q3

REPORT INFORMATION
  Report Type: 
  Country: None (occurrence: None)
  Receive Date: 20100712
  Receipt Date: 20070322
  Transmission Date: 20110219
  Serious: No
  Sender: FDA-Public Use
  Company Number: US-PFIZER INC-2007023426

PATIENT
  Sex: Female
  Weight: 57.61 kg

DRUGS (4)
  1. CHANTIX [Suspect]
     Indication: SMOKING CESSATION THERAPY
     Dates: start: 20070227, end: 20070305
  2. ESTRATEST H.S. [Concomitant]
  3. SYNTHROID [Concomitant]
     Indication: THYROID DISORDER
  4. NEURONTIN [Concomitant]

REACTIONS (2)
  - HEADACHE [None]
  - NAUSEA [None]
